FAERS Safety Report 21811231 (Version 1)
Quarter: 2023Q1

REPORT INFORMATION
  Report Type: Report from Study
  Country: CA (occurrence: CA)
  Receive Date: 20230103
  Receipt Date: 20230103
  Transmission Date: 20230418
  Serious: Yes (Hospitalization)
  Sender: FDA-Public Use
  Company Number: CA-China IPSEN SC-2022-35124

PATIENT
  Age: 66 Year
  Sex: Female

DRUGS (14)
  1. LANREOTIDE ACETATE [Suspect]
     Active Substance: LANREOTIDE ACETATE
     Indication: Carcinoid syndrome
     Dosage: Q4 WEEKS
     Route: 058
     Dates: start: 20220601
  2. TRESIBA [Concomitant]
     Active Substance: INSULIN DEGLUDEC
     Dosage: 7 UN HS
  3. FENTANYL [Concomitant]
     Active Substance: FENTANYL
     Dosage: 75 MCG/HR 1 PATCH Q 3 DAYS
  4. PREGABALIN [Concomitant]
     Active Substance: PREGABALIN
     Dosage: 50 MG 1 CAP (THRICE DAILY) TID
  5. CINACALCET [Concomitant]
     Active Substance: CINACALCET
     Dosage: 30 MG 1 CO EVERY OTHER DAY
  6. MAGNESIUM OXIDE [Concomitant]
     Active Substance: MAGNESIUM OXIDE
     Dosage: 500 MG 2 CO (TWICE DAILY) BID
  7. METOPROLOL [Concomitant]
     Active Substance: METOPROLOL
     Dosage: 25 MG 1 1/2 CO (TWICE DAILY) BID
  8. CALCIUM CARBONATE [Concomitant]
     Active Substance: CALCIUM CARBONATE
     Dosage: 500 MG 1 CO DIE
  9. Vltamin D [Concomitant]
     Dosage: 1000 IU 2 CO DIE
  10. CYMBALTA [Concomitant]
     Active Substance: DULOXETINE HYDROCHLORIDE
     Dosage: 60 MG DIE
  11. ASPIRIN [Concomitant]
     Active Substance: ASPIRIN
     Dosage: 81 MG 1 CO DIE
  12. ROSUVASTATIN [Concomitant]
     Active Substance: ROSUVASTATIN
     Dosage: 10 MG 1 CO DIE
  13. VITAMIN B [Concomitant]
     Active Substance: VITAMIN B
     Dosage: 1000 MCG 1 CO DIE
  14. PANTOPRAZOLE [Concomitant]
     Active Substance: PANTOPRAZOLE
     Dosage: 40 MG 1 CO BID

REACTIONS (3)
  - Nephrolithiasis [Recovering/Resolving]
  - Hypotension [Recovering/Resolving]
  - Infection [Recovering/Resolving]

NARRATIVE: CASE EVENT DATE: 20221201
